FAERS Safety Report 4447069-6 (Version None)
Quarter: 2004Q3

REPORT INFORMATION
  Report Type: 
  Country: None (occurrence: None)
  Receive Date: 20040813
  Receipt Date: 20040504
  Transmission Date: 20050211
  Serious: No
  Sender: FDA-Public Use
  Company Number: S04-USA-03567-01

PATIENT
  Age: 74 Year
  Sex: Male

DRUGS (10)
  1. NAMENDA [Suspect]
     Indication: DEMENTIA ALZHEIMER'S TYPE
     Dosage: 10 MG QD PO
     Route: 048
     Dates: start: 20040426, end: 20040502
  2. NAMENDA [Suspect]
     Indication: DEMENTIA ALZHEIMER'S TYPE
     Dosage: 15 MG QD PO
     Route: 048
     Dates: start: 20040503
  3. NAMENDA [Suspect]
     Indication: DEMENTIA ALZHEIMER'S TYPE
     Dosage: 5 MG QD PO
     Route: 048
     Dates: start: 20040419, end: 20040425
  4. ARICEPT [Concomitant]
  5. TRAZODONE [Concomitant]
  6. PAXIL [Concomitant]
  7. IRON [Concomitant]
  8. VITAMIN E [Concomitant]
  9. VITAMIN B COMPLEX CAP [Concomitant]
  10. STUDY CHOLESTEROL MEDICATION [Concomitant]

REACTIONS (2)
  - AGGRESSION [None]
  - ENERGY INCREASED [None]
